FAERS Safety Report 12627317 (Version 1)
Quarter: 2016Q3

REPORT INFORMATION
  Report Type: Report from Study
  Country: US (occurrence: US)
  Receive Date: 20160805
  Receipt Date: 20160805
  Transmission Date: 20161109
  Serious: No
  Sender: FDA-Public Use
  Company Number: US-AMGEN-USASL2015109201

PATIENT
  Age: 66 Year
  Sex: Female

DRUGS (1)
  1. NPLATE [Suspect]
     Active Substance: ROMIPLOSTIM
     Indication: PLATELET COUNT ABNORMAL
     Dosage: UNK
     Route: 065
     Dates: start: 201509

REACTIONS (8)
  - Thyroid mass [Unknown]
  - Feeling abnormal [Unknown]
  - Sleep disorder due to general medical condition, insomnia type [Unknown]
  - Platelet count abnormal [Unknown]
  - Adverse drug reaction [Unknown]
  - Bone pain [Unknown]
  - Insomnia [Not Recovered/Not Resolved]
  - Headache [Not Recovered/Not Resolved]

NARRATIVE: CASE EVENT DATE: 201509
